FAERS Safety Report 4843718-9 (Version None)
Quarter: 2005Q4

REPORT INFORMATION
  Report Type: 
  Country: None (occurrence: None)
  Receive Date: 20051202
  Receipt Date: 20051012
  Transmission Date: 20060501
  Serious: Yes (Hospitalization)
  Sender: FDA-Public Use
  Company Number: 200519112GDDC

PATIENT
  Age: 60 Year
  Sex: Female
  Weight: 42.4 kg

DRUGS (4)
  1. ARAVA [Suspect]
     Indication: RHEUMATOID ARTHRITIS
     Route: 048
     Dates: start: 20050517, end: 20050601
  2. ARAVA [Suspect]
     Dosage: DOSE: 10-20
     Route: 048
     Dates: start: 20050727, end: 20050801
  3. MEDROL [Concomitant]
     Indication: ASTHMA
  4. MEDROL [Concomitant]
     Indication: RHEUMATOID ARTHRITIS

REACTIONS (13)
  - ARTHRALGIA [None]
  - ASTHENIA [None]
  - BRONCHOSPASM [None]
  - DRUG ERUPTION [None]
  - HAEMOTHORAX [None]
  - HYPERSENSITIVITY [None]
  - LUNG DISORDER [None]
  - MITRAL VALVE INCOMPETENCE [None]
  - OXYGEN SATURATION DECREASED [None]
  - RALES [None]
  - RESPIRATORY DISORDER [None]
  - SKIN REACTION [None]
  - THYROXINE INCREASED [None]
